FAERS Safety Report 24634054 (Version 3)
Quarter: 2024Q4

REPORT INFORMATION
  Report Type: Report from Study
  Country: CA (occurrence: CA)
  Receive Date: 20241119
  Receipt Date: 20241210
  Transmission Date: 20250114
  Serious: Yes (Other)
  Sender: ABBVIE
  Company Number: CA-ABBVIE-5998842

PATIENT
  Age: 79 Year
  Sex: Male

DRUGS (1)
  1. SKYRIZI [Suspect]
     Active Substance: RISANKIZUMAB-RZAA
     Indication: Crohn^s disease
     Route: 058
     Dates: start: 20240808

REACTIONS (7)
  - Small intestinal obstruction [Unknown]
  - Drug ineffective [Unknown]
  - Frequent bowel movements [Unknown]
  - Weight decreased [Unknown]
  - Ileal perforation [Unknown]
  - Malaise [Unknown]
  - Dementia with Lewy bodies [Unknown]

NARRATIVE: CASE EVENT DATE: 20240101
